FAERS Safety Report 9751936 (Version 2)
Quarter: 2014Q1

REPORT INFORMATION
  Report Type: Report from Study
  Country: DE (occurrence: DE)
  Receive Date: 20131213
  Receipt Date: 20140306
  Transmission Date: 20141002
  Serious: Yes (Hospitalization, Other)
  Sender: FDA-Public Use
  Company Number: DE-ROCHE-1319139

PATIENT
  Sex: Female

DRUGS (11)
  1. RITUXIMAB [Suspect]
     Indication: RHEUMATOID ARTHRITIS
     Route: 065
     Dates: start: 20070725
  2. RITUXIMAB [Suspect]
     Route: 065
     Dates: start: 10080306
  3. RITUXIMAB [Suspect]
     Route: 065
     Dates: start: 20081008
  4. RITUXIMAB [Suspect]
     Route: 065
     Dates: start: 20090430
  5. RITUXIMAB [Suspect]
     Route: 065
     Dates: start: 20091005
  6. RITUXIMAB [Suspect]
     Route: 065
     Dates: start: 20101008
  7. RITUXIMAB [Suspect]
     Route: 065
     Dates: start: 20111006
  8. RITUXIMAB [Suspect]
     Route: 065
     Dates: start: 20130103
  9. RITUXIMAB [Suspect]
     Route: 065
     Dates: start: 20130709
  10. METHOTREXAT [Concomitant]
     Indication: RHEUMATOID ARTHRITIS
     Route: 065
     Dates: start: 20070725
  11. METHOTREXAT [Concomitant]
     Route: 065
     Dates: start: 20071023

REACTIONS (2)
  - Congestive cardiomyopathy [Recovered/Resolved with Sequelae]
  - Ejection fraction decreased [Unknown]
